FAERS Safety Report 10084536 (Version 1)
Quarter: 2014Q2

REPORT INFORMATION
  Report Type: Spontaneous
  Country: FR (occurrence: FR)
  Receive Date: 20140417
  Receipt Date: 20140417
  Transmission Date: 20141212
  Serious: Yes (Death)
  Sender: FDA-Public Use
  Company Number: FR-ASTRAZENECA-2014SE26128

PATIENT
  Age: 88 Year
  Sex: Female

DRUGS (13)
  1. INEXIUM [Suspect]
     Route: 048
     Dates: start: 20140118, end: 20140205
  2. DOLIPRANE [Suspect]
     Route: 048
     Dates: start: 20140131, end: 20140206
  3. XARELTO [Suspect]
     Route: 048
     Dates: start: 20140204, end: 20140205
  4. KARDEGIC [Suspect]
     Route: 048
     Dates: start: 20140118, end: 20140205
  5. PROZAC [Suspect]
     Route: 048
     Dates: start: 20140124, end: 20140206
  6. LAMOTRIGINE MYLAN [Suspect]
     Route: 048
     Dates: start: 20140131, end: 20140205
  7. MODOPAR [Suspect]
     Route: 048
     Dates: start: 20140203, end: 20140206
  8. PERINDOPRIL ARROW [Suspect]
     Route: 048
     Dates: start: 20140119, end: 20140206
  9. DOMPERIDONE TEVA [Suspect]
     Route: 048
     Dates: start: 20140128, end: 20140206
  10. BISOCE [Suspect]
     Route: 048
     Dates: start: 20140119, end: 20140206
  11. LERCAN [Suspect]
     Route: 048
     Dates: start: 20140119, end: 20140206
  12. DUPHALAC [Suspect]
     Route: 048
     Dates: start: 20140127, end: 20140206
  13. CONTRAMAL [Suspect]
     Route: 048
     Dates: start: 20140203, end: 20140207

REACTIONS (4)
  - Meningorrhagia [Fatal]
  - Central nervous system lesion [Unknown]
  - Hemianopia homonymous [Unknown]
  - Sensorimotor disorder [Unknown]
